FAERS Safety Report 17119957 (Version 2)
Quarter: 2019Q4

REPORT INFORMATION
  Report Type: Spontaneous
  Country: US (occurrence: US)
  Receive Date: 20191206
  Receipt Date: 20191231
  Transmission Date: 20200122
  Serious: No
  Sender: FDA-Public Use
  Company Number: NVSC2019US056821

PATIENT
  Sex: Female

DRUGS (7)
  1. PAMIDRONATE [Suspect]
     Active Substance: PAMIDRONATE DISODIUM
     Indication: BONE DENSITY DECREASED
  2. PAMIDRONATE [Suspect]
     Active Substance: PAMIDRONATE DISODIUM
     Indication: OSTEOPOROSIS
     Dosage: 1.5 MG/KG (MAXIMUM DOSE: 60 MG) EVERY 3 MONTHS
     Route: 042
  3. ZOLEDRONIC ACID [Suspect]
     Active Substance: ZOLEDRONIC ACID
     Indication: OSTEOPOROSIS
     Dosage: 0.05 MG/KG (MAXIMUM DOSE: 60 MG) EVERY 3 MONTHS
     Route: 042
  4. ASCORBIC ACID;CALCIUM GLUCONATE;CAL [Concomitant]
     Indication: PRODUCT USED FOR UNKNOWN INDICATION
     Dosage: 50 MG/KG
     Route: 042
  5. ZOLEDRONIC ACID [Suspect]
     Active Substance: ZOLEDRONIC ACID
     Indication: BONE DENSITY DECREASED
  6. CALCIUM + VITAMIN D [Concomitant]
     Active Substance: CALCIUM\VITAMIN D
     Indication: PRODUCT USED FOR UNKNOWN INDICATION
     Dosage: 2000 IU
     Route: 065
  7. CALCIUM CARBONATE. [Concomitant]
     Active Substance: CALCIUM CARBONATE
     Indication: PRODUCT USED FOR UNKNOWN INDICATION
     Dosage: 250 MG, TID
     Route: 065

REACTIONS (7)
  - Diarrhoea [Unknown]
  - Product use in unapproved indication [Unknown]
  - Autonomic nervous system imbalance [Unknown]
  - Pain [Unknown]
  - Hypocalcaemia [Unknown]
  - Hypophosphataemia [Unknown]
  - Pyrexia [Unknown]
